FAERS Safety Report 9795938 (Version 1)
Quarter: 2014Q1

REPORT INFORMATION
  Report Type: Spontaneous
  Country: US (occurrence: US)
  Receive Date: 20140103
  Receipt Date: 20140103
  Transmission Date: 20141002
  Serious: No
  Sender: FDA-Public Use
  Company Number: US-PFIZER INC-2013374485

PATIENT
  Age: 68 Year
  Sex: 0

DRUGS (1)
  1. INLYTA [Suspect]
     Indication: NEOPLASM MALIGNANT
     Dosage: 5 MG, 2X/DAY

REACTIONS (2)
  - Disease progression [Unknown]
  - Neoplasm malignant [Unknown]
